FAERS Safety Report 20050627 (Version 1)
Quarter: 2021Q4

REPORT INFORMATION
  Report Type: Spontaneous
  Country: US (occurrence: US)
  Receive Date: 20211109
  Receipt Date: 20211109
  Transmission Date: 20220303
  Serious: Yes (Other)
  Sender: FDA-Public Use
  Company Number: US-SUN PHARMACEUTICAL INDUSTRIES LTD-2021R1-316713

PATIENT
  Age: 53 Year
  Sex: Female

DRUGS (1)
  1. METHIMAZOLE [Suspect]
     Active Substance: METHIMAZOLE
     Indication: Basedow^s disease
     Dosage: 15 MILLIGRAM, DAILY
     Route: 065

REACTIONS (3)
  - Agranulocytosis [Recovered/Resolved]
  - Leukopenia [Not Recovered/Not Resolved]
  - Hyperthyroidism [Unknown]
